FAERS Safety Report 25215367 (Version 3)
Quarter: 2025Q3

REPORT INFORMATION
  Report Type: Report from Study
  Country: US (occurrence: US)
  Receive Date: 20250418
  Receipt Date: 20250723
  Transmission Date: 20251020
  Serious: No
  Sender: AVERITAS
  Company Number: US-GRUNENTHAL-2025-105579

PATIENT
  Age: 59 Year
  Sex: Male

DRUGS (3)
  1. QUTENZA [Suspect]
     Active Substance: CAPSAICIN
     Indication: Diabetic neuropathy
     Route: 061
     Dates: start: 20250412, end: 20250412
  2. QUTENZA [Suspect]
     Active Substance: CAPSAICIN
     Route: 061
     Dates: start: 20241227, end: 20241227
  3. QUTENZA [Suspect]
     Active Substance: CAPSAICIN
     Route: 061
     Dates: start: 20250712, end: 20250712

REACTIONS (2)
  - Application site pain [Recovered/Resolved]
  - Pain [Recovered/Resolved]

NARRATIVE: CASE EVENT DATE: 20250413
